FAERS Safety Report 8482187 (Version 2)
Quarter: 2012Q4

REPORT INFORMATION
  Report Type: 
  Country: KW (occurrence: KW)
  Receive Date: 20120329
  Receipt Date: 20121109
  Transmission Date: 20130627
  Serious: Yes (Other)
  Sender: FDA-Public Use
  Company Number: KW-BIOMARINP-002403

PATIENT
  Sex: Male
  Weight: 19 kg

DRUGS (1)
  1. NAGLAZYME [Suspect]
     Indication: MUCOPOLYSACCHARIDOSIS VI
     Dates: start: 2007

REACTIONS (1)
  - Spinal cord compression [Unknown]
